APPROVED DRUG PRODUCT: BENSULFOID
Active Ingredient: SULFUR
Strength: 33.32%
Dosage Form/Route: POWDER;TOPICAL
Application: N002918 | Product #001
Applicant: WILLIAM P POYTHRESS AND CO INC
Approved: Approved Prior to Jan 1, 1982 | RLD: No | RS: No | Type: DISCN